FAERS Safety Report 8029996-6 (Version None)
Quarter: 2012Q1

REPORT INFORMATION
  Report Type: 
  Country: None (occurrence: None)
  Receive Date: 20120105
  Receipt Date: 20111221
  Transmission Date: 20120608
  Serious: Yes (Hospitalization)
  Sender: FDA-Public Use
  Company Number: 2011ST000567

PATIENT
  Age: 75 Year
  Sex: Female

DRUGS (1)
  1. MATULANE [Suspect]
     Indication: LYMPHOMA
     Dosage: 50 MG; QD; PO
     Route: 048
     Dates: start: 20111031

REACTIONS (1)
  - TOXICITY TO VARIOUS AGENTS [None]
